FAERS Safety Report 22207402 (Version 1)
Quarter: 2023Q2

REPORT INFORMATION
  Report Type: Spontaneous
  Country: CN (occurrence: CN)
  Receive Date: 20230413
  Receipt Date: 20230413
  Transmission Date: 20230722
  Serious: Yes (Hospitalization, Other)
  Sender: FDA-Public Use
  Company Number: CN-Merck Healthcare KGaA-9394271

PATIENT
  Age: 34 Year
  Sex: Female

DRUGS (2)
  1. EUTHYROX [Suspect]
     Active Substance: LEVOTHYROXINE SODIUM
     Indication: Hypothyroidism
     Dosage: MANUFACTURING DATE: 19 AUG 2022
  2. SODIUM IODIDE I-131 [Concomitant]
     Active Substance: SODIUM IODIDE I-131
     Indication: Hyperthyroidism

REACTIONS (9)
  - COVID-19 [Unknown]
  - Gait disturbance [Unknown]
  - Alopecia [Unknown]
  - Dyspnoea [Unknown]
  - Blood thyroid stimulating hormone increased [Unknown]
  - Palpitations [Unknown]
  - Drug ineffective [Unknown]
  - Underdose [Unknown]
  - Product dose omission issue [Unknown]
